FAERS Safety Report 8575988-8 (Version None)
Quarter: 2012Q3

REPORT INFORMATION
  Report Type: 
  Country: None (occurrence: None)
  Receive Date: 20120807
  Receipt Date: 20120802
  Transmission Date: 20120928
  Serious: Yes (Death, Hospitalization, Other)
  Sender: FDA-Public Use
  Company Number: CA-US-EMD SERONO, INC.-7015720

PATIENT
  Sex: Female

DRUGS (1)
  1. REBIF [Suspect]
     Indication: RELAPSING-REMITTING MULTIPLE SCLEROSIS
     Route: 058
     Dates: start: 20000216, end: 20120115

REACTIONS (9)
  - PARANEOPLASTIC SYNDROME [None]
  - ONYCHALGIA [None]
  - MOTOR NEURONE DISEASE [None]
  - SOMNOLENCE [None]
  - FATIGUE [None]
  - INGROWING NAIL [None]
  - DEATH [None]
  - BREAST CANCER [None]
  - FAECAL INCONTINENCE [None]
